FAERS Safety Report 9885804 (Version 3)
Quarter: 2014Q2

REPORT INFORMATION
  Report Type: Spontaneous
  Country: US (occurrence: US)
  Receive Date: 20140210
  Receipt Date: 20140502
  Transmission Date: 20141212
  Serious: Yes (Hospitalization, Other)
  Sender: FDA-Public Use
  Company Number: US-BRISTOL-MYERS SQUIBB COMPANY-18572958

PATIENT
  Age: 72 Year
  Sex: Male
  Weight: 110.2 kg

DRUGS (29)
  1. BYETTA PEN DISPOSABLE [Suspect]
  2. BYETTA PEN DISPOSABLE [Suspect]
  3. BYETTA PEN DISPOSABLE [Suspect]
     Dosage: 1 DF: 10 MCG/0.04
     Dates: start: 20060921
  4. BYETTA PEN DISPOSABLE [Suspect]
     Route: 058
     Dates: start: 20061016
  5. NPH INSULIN [Concomitant]
  6. NPH INSULIN [Concomitant]
  7. HUMALOG [Concomitant]
     Dosage: 1 DF: 100 U/ML
  8. ACTOS [Concomitant]
  9. METFORMIN [Concomitant]
  10. ZOCOR [Concomitant]
  11. SINGULAIR [Concomitant]
     Route: 048
  12. ADVAIR [Concomitant]
     Dosage: 1 DF: 500-50 MCG
  13. FLUOXETINE [Concomitant]
  14. PRILOSEC [Concomitant]
  15. SPIRIVA [Concomitant]
  16. ALBUTEROL [Concomitant]
     Dosage: 2 PUFFS EVERY 4 HRS
  17. ATENOLOL [Concomitant]
     Route: 048
  18. FLOMAX [Concomitant]
  19. ASPIRIN [Concomitant]
     Dosage: 325MG
  20. LISINOPRIL [Concomitant]
     Route: 048
  21. HUMULIN N [Concomitant]
     Dosage: 1 DF: 100 U/MI
  22. INSULIN NPH [Concomitant]
     Dosage: 1DF=30 UNIT AM,70 UNITS PM
  23. INSULIN SLIDING SCALE [Concomitant]
  24. OMEPRAZOLE [Concomitant]
     Route: 048
  25. ALIGN [Concomitant]
  26. REGLAN [Concomitant]
  27. PARLODEL [Concomitant]
     Route: 048
  28. ZANTAC [Concomitant]
     Dosage: 1DF=2-3 TABLETS WITH MEALS
     Route: 048
  29. NOVOLOG [Concomitant]
     Dosage: 1 DF=8,6 UNITS NOS.
     Route: 058

REACTIONS (4)
  - Pancreatic carcinoma recurrent [Unknown]
  - Pancreatitis [Unknown]
  - Prostate cancer [Unknown]
  - Cholecystectomy [Unknown]
